FAERS Safety Report 16281659 (Version 3)
Quarter: 2019Q3

REPORT INFORMATION
  Report Type: Spontaneous
  Country: US (occurrence: US)
  Receive Date: 20190507
  Receipt Date: 20190802
  Transmission Date: 20191004
  Serious: No
  Sender: FDA-Public Use
  Company Number: US-PFIZER INC-2019189907

PATIENT
  Age: 80 Year
  Sex: Female

DRUGS (6)
  1. LYRICA [Suspect]
     Active Substance: PREGABALIN
     Dosage: 4 DF, DAILY (2 CAP. IN MORN, 1 AFTERNOON, 1 AT NIGHT)
     Dates: start: 20190507
  2. LYRICA [Suspect]
     Active Substance: PREGABALIN
     Indication: OSTEOARTHRITIS
     Dosage: 100 MG, 3X/DAY (50MG 2 CAPSULE BY MOUTH 3 TIMES A DAY)
     Route: 048
     Dates: start: 201902
  3. LYRICA [Suspect]
     Active Substance: PREGABALIN
     Indication: SPINAL FRACTURE
     Dosage: 50 MG, 4X/DAY (2 CAPSULE IN THE MORNING, 1 CAPSULE IN THE AFTERNOON, AND 1 CAPSULE AT NIGHT)
     Route: 048
     Dates: start: 201902
  4. LYRICA [Suspect]
     Active Substance: PREGABALIN
     Dosage: 250 MG, DAILY (2 CAPSULES IN THE MORNING, 1 IN THE AFTERNOON, AND 2 AT BEDTIME)
     Route: 048
     Dates: start: 20190322
  5. LYRICA [Suspect]
     Active Substance: PREGABALIN
     Dosage: 100 MG, 1X/DAY (ONLY TAKING 100 MG IN THE MORNING)
  6. PERCOCET [Suspect]
     Active Substance: ACETAMINOPHEN\OXYCODONE HYDROCHLORIDE
     Dosage: UNK, 3X/DAY (10/325 ON ONE SIDE AND THE OTHER SIDE HAS M523)

REACTIONS (5)
  - Product use issue [Unknown]
  - Off label use [Unknown]
  - Drug ineffective [Unknown]
  - Urinary incontinence [Unknown]
  - Bladder disorder [Not Recovered/Not Resolved]

NARRATIVE: CASE EVENT DATE: 2019
